FAERS Safety Report 15991309 (Version 1)
Quarter: 2019Q1

REPORT INFORMATION
  Report Type: Spontaneous
  Country: FR (occurrence: FR)
  Receive Date: 20190221
  Receipt Date: 20190221
  Transmission Date: 20190418
  Serious: Yes (Death, Other)
  Sender: FDA-Public Use
  Company Number: FR-PFIZER INC-2019072227

PATIENT
  Age: 49 Year
  Sex: Male

DRUGS (5)
  1. ZOLOFT [Suspect]
     Active Substance: SERTRALINE HYDROCHLORIDE
     Dosage: UNK
     Route: 048
  2. VALIUM [Concomitant]
     Active Substance: DIAZEPAM
     Dosage: 20 MG, DAILY (1 DF IN THE MORNING AND IN THE AFTERNOON - 2 DFIN THE EVENING
     Route: 048
  3. NARDIL [Suspect]
     Active Substance: PHENELZINE SULFATE
     Dosage: 4 DF, 1X/DAY
     Route: 048
  4. HAVLANE [Concomitant]
     Active Substance: LOPRAZOLAM
     Dosage: 1 MG, 1X/DAY
     Route: 048
  5. PARACETAMOL [Concomitant]
     Active Substance: ACETAMINOPHEN
     Dosage: UNK
     Route: 048

REACTIONS (2)
  - Coma [Fatal]
  - Serotonin syndrome [Fatal]

NARRATIVE: CASE EVENT DATE: 20181211
